FAERS Safety Report 4509950-9 (Version None)
Quarter: 2004Q4

REPORT INFORMATION
  Report Type: 
  Country: None (occurrence: None)
  Receive Date: 20041124
  Receipt Date: 20041118
  Transmission Date: 20050328
  Serious: Yes (Death)
  Sender: FDA-Public Use
  Company Number: US-JNJFOC-20041104888

PATIENT
  Sex: Male

DRUGS (1)
  1. DURAGESIC [Suspect]
     Indication: CANCER PAIN
     Dosage: ONE 100 UG/HR PATCH PLUS ONE 50 UG/HR PATCH
     Route: 062
     Dates: end: 20041001

REACTIONS (1)
  - DEATH [None]
